FAERS Safety Report 16107778 (Version 1)
Quarter: 2019Q1

REPORT INFORMATION
  Report Type: Report from Study
  Country: US (occurrence: US)
  Receive Date: 20190322
  Receipt Date: 20190322
  Transmission Date: 20190418
  Serious: Yes (Hospitalization)
  Sender: FDA-Public Use
  Company Number: US-PFIZER INC-2019120925

PATIENT
  Age: 68 Year
  Sex: Male
  Weight: 66.5 kg

DRUGS (5)
  1. MS CONTIN [Suspect]
     Active Substance: MORPHINE SULFATE
     Indication: PAIN
     Dosage: 30 MG, 2X/DAY
     Dates: start: 20190220
  2. SENOKOT [Suspect]
     Active Substance: SENNOSIDES
     Indication: CONSTIPATION
     Dosage: 8.6 MG, 2X/DAY
     Dates: start: 20190215
  3. MIRALAX [Concomitant]
     Active Substance: POLYETHYLENE GLYCOL 3350
     Dosage: UNK
  4. NEURONTIN [Suspect]
     Active Substance: GABAPENTIN
     Indication: PAIN
     Dosage: 300 MG, 3X/DAY (Q8H)
     Dates: start: 20190127
  5. MSIR [Suspect]
     Active Substance: MORPHINE SULFATE
     Indication: PAIN
     Dosage: 15 MG, EVERY 4 HOURS
     Dates: start: 20190220

REACTIONS (2)
  - Pyelonephritis acute [Recovered/Resolved with Sequelae]
  - Product use in unapproved indication [Unknown]

NARRATIVE: CASE EVENT DATE: 20190127
